FAERS Safety Report 10268705 (Version 1)
Quarter: 2014Q2

REPORT INFORMATION
  Report Type: Spontaneous
  Country: US (occurrence: US)
  Receive Date: 20140630
  Receipt Date: 20140630
  Transmission Date: 20141212
  Serious: Yes (Hospitalization)
  Sender: FDA-Public Use
  Company Number: US-B.I. PHARMACEUTICALS,INC./RIDGEFIELD-2014-BI-29194BP

PATIENT
  Age: 74 Year
  Sex: Male
  Weight: 80 kg

DRUGS (5)
  1. SPIRIVA [Suspect]
     Indication: EMPHYSEMA
     Dosage: 18 MCG
     Route: 055
     Dates: start: 20140609
  2. ADVAIR [Concomitant]
     Indication: EMPHYSEMA
     Dosage: FORMULATION:INHALATION AEROSOL; STRENGTH: 250/50; DAILY DOSE: 500/100
     Route: 048
     Dates: start: 2009
  3. ARICEPT [Concomitant]
     Indication: PALLIATIVE CARE
     Dosage: 10 MG
     Route: 048
     Dates: start: 2009
  4. NAMENDA [Concomitant]
     Indication: PALLIATIVE CARE
     Dosage: 20 MG
     Route: 048
     Dates: start: 2009
  5. CELEXA [Concomitant]
     Indication: PALLIATIVE CARE
     Dosage: 40 MG
     Route: 048
     Dates: start: 2009

REACTIONS (2)
  - Pneumothorax [Not Recovered/Not Resolved]
  - Pulmonary air leakage [Recovered/Resolved]
